FAERS Safety Report 19870774 (Version 6)
Quarter: 2021Q4

REPORT INFORMATION
  Report Type: Spontaneous
  Country: DE (occurrence: DE)
  Receive Date: 20210923
  Receipt Date: 20211129
  Transmission Date: 20220303
  Serious: No
  Sender: FDA-Public Use
  Company Number: DE-EMA-DD-20210930-BHUSHAN_A-174235

PATIENT
  Age: 61 Year
  Sex: Male
  Weight: 87 kg

DRUGS (3)
  1. FENTANYL [Suspect]
     Active Substance: FENTANYL
     Indication: Pain
     Dosage: STRENGTH: 50.00 MCG/HR
     Route: 062
     Dates: start: 20210806, end: 20210806
  2. FENTANYL [Suspect]
     Active Substance: FENTANYL
     Dosage: STRENGTH: UNKNOWN
     Route: 062
  3. FENTANYL [Suspect]
     Active Substance: FENTANYL
     Route: 062

REACTIONS (3)
  - Dermatitis allergic [Unknown]
  - Product adhesion issue [Unknown]
  - Product quality issue [Unknown]
